FAERS Safety Report 4757098-0 (Version None)
Quarter: 2005Q3

REPORT INFORMATION
  Report Type: 
  Country: None (occurrence: None)
  Receive Date: 20050829
  Receipt Date: 20050829
  Transmission Date: 20060218
  Serious: Yes (Death)
  Sender: FDA-Public Use
  Company Number: None

PATIENT
  Age: 50 Year
  Sex: Male

DRUGS (9)
  1. AVASTIN [Suspect]
     Indication: GLIOBLASTOMA MULTIFORME
     Dosage: 450MG   Q 14 DAYS   IV
     Route: 042
     Dates: start: 20050818, end: 20050818
  2. CAMPTOSAR [Suspect]
     Dosage: 260MG   4 WEEKS ON, 2 OFF    IV
     Route: 042
  3. ALOXI [Concomitant]
  4. DECADRON [Concomitant]
  5. BENADRYL [Concomitant]
  6. IMODIUM [Concomitant]
  7. METOPROLOL [Concomitant]
  8. MS CONTIN [Concomitant]
  9. ZOFRAN [Concomitant]

REACTIONS (3)
  - CARDIAC ARREST [None]
  - FALL [None]
  - VENTRICULAR FIBRILLATION [None]
